FAERS Safety Report 4778054-2 (Version None)
Quarter: 2005Q3

REPORT INFORMATION
  Report Type: 
  Country: None (occurrence: None)
  Receive Date: 20050921
  Receipt Date: 20050909
  Transmission Date: 20060218
  Serious: Yes (Hospitalization)
  Sender: FDA-Public Use
  Company Number: DSA_26415_2005

PATIENT
  Age: 76 Year
  Sex: Female

DRUGS (4)
  1. CARDIZEM LA [Suspect]
     Indication: BLOOD PRESSURE
     Dosage: 240 MG Q DAY PO
     Route: 048
     Dates: start: 20050506, end: 20050507
  2. CARDIZEM LA [Suspect]
     Indication: BLOOD PRESSURE
     Dosage: 240 MG Q DAY PO
     Route: 048
     Dates: start: 20050401, end: 20050505
  3. NITROSTAT [Concomitant]
  4. BUSIPIRONE [Concomitant]

REACTIONS (4)
  - CHEST DISCOMFORT [None]
  - FEELING ABNORMAL [None]
  - FLUSHING [None]
  - HEART RATE INCREASED [None]
